FAERS Safety Report 6339401-3 (Version None)
Quarter: 2009Q3

REPORT INFORMATION
  Report Type: 
  Country: None (occurrence: None)
  Receive Date: 20090903
  Receipt Date: 20090831
  Transmission Date: 20100115
  Serious: No
  Sender: FDA-Public Use
  Company Number: US-JNJFOC-20090804169

PATIENT
  Sex: Female
  Weight: 77.11 kg

DRUGS (2)
  1. FENTANYL TRANSDERMAL SYSTEM [Suspect]
     Dosage: FOUR 100 UG/HR PATCH
     Route: 062
  2. FENTANYL TRANSDERMAL SYSTEM [Suspect]
     Indication: INTERVERTEBRAL DISC DISORDER
     Route: 062

REACTIONS (2)
  - APPLICATION SITE URTICARIA [None]
  - INAPPROPRIATE SCHEDULE OF DRUG ADMINISTRATION [None]
